FAERS Safety Report 5106509-X (Version None)
Quarter: 2006Q3

REPORT INFORMATION
  Report Type: 
  Country: None (occurrence: None)
  Receive Date: 20060731
  Receipt Date: 20060202
  Transmission Date: 20061208
  Serious: Yes (Death)
  Sender: FDA-Public Use
  Company Number: US-JNJFOC-20060201611

PATIENT
  Age: 81 Year
  Sex: Female

DRUGS (1)
  1. RISPERDAL [Suspect]
     Indication: DRUG USE FOR UNKNOWN INDICATION
     Dosage: 0.5 MG, 2 IN 1 DAY , ORAL
     Route: 048
     Dates: start: 20050301

REACTIONS (1)
  - CEREBROVASCULAR ACCIDENT [None]
